FAERS Safety Report 6273700-9 (Version None)
Quarter: 2009Q3

REPORT INFORMATION
  Report Type: 
  Country: None (occurrence: None)
  Receive Date: 20090715
  Receipt Date: 20090710
  Transmission Date: 20100115
  Serious: Yes (Death)
  Sender: FDA-Public Use
  Company Number: 2009SP015219

PATIENT
  Age: 11 Month

DRUGS (1)
  1. DESLORATADINE [Suspect]
     Indication: DYSPNOEA
     Dosage: PO
     Route: 048

REACTIONS (1)
  - DYSPNOEA [None]
